FAERS Safety Report 9748022 (Version 2)
Quarter: 2013Q4

REPORT INFORMATION
  Report Type: Spontaneous
  Country: US (occurrence: US)
  Receive Date: 20131212
  Receipt Date: 20131212
  Transmission Date: 20140711
  Serious: Yes (Other)
  Sender: FDA-Public Use
  Company Number: US-TEVA-389299USA

PATIENT
  Age: 46 Year
  Sex: Female
  Weight: 81.72 kg

DRUGS (4)
  1. PARAGARD 380A [Suspect]
     Indication: CONTRACEPTION
     Route: 015
     Dates: start: 20130131, end: 20130219
  2. ATENOLOL [Concomitant]
     Dosage: 50 MILLIGRAM DAILY; BID
  3. ASA [Concomitant]
  4. KCL [Concomitant]

REACTIONS (9)
  - Pelvic inflammatory disease [Recovered/Resolved]
  - Metrorrhagia [Recovered/Resolved]
  - Pelvic pain [Recovered/Resolved]
  - Back pain [Recovered/Resolved]
  - Abdominal tenderness [Recovered/Resolved]
  - Endometritis [None]
  - Menorrhagia [Recovered/Resolved]
  - Dizziness [Unknown]
  - Dyspareunia [Unknown]
